FAERS Safety Report 8826368 (Version 4)
Quarter: 2013Q2

REPORT INFORMATION
  Report Type: Report from Study
  Country: CA (occurrence: CA)
  Receive Date: 20121005
  Receipt Date: 20130612
  Transmission Date: 20140414
  Serious: Yes (Other)
  Sender: FDA-Public Use
  Company Number: CA-ROCHE-1140716

PATIENT
  Age: 57 Year
  Sex: Female
  Weight: 65.8 kg

DRUGS (13)
  1. RITUXAN [Suspect]
     Indication: RHEUMATOID ARTHRITIS
     Dosage: DAY 1 , 15
     Route: 042
     Dates: start: 20080915
  2. METHOTREXATE [Concomitant]
  3. LISINOPRIL [Concomitant]
  4. NORVASC [Concomitant]
  5. PREDNISONE [Concomitant]
  6. ACTONEL [Concomitant]
  7. FOLIC ACID [Concomitant]
  8. PREVACID [Concomitant]
  9. SYNTHROID [Concomitant]
  10. TYLENOL ARTHRITIS [Concomitant]
  11. DIPHENHYDRAMINE HCL [Concomitant]
     Route: 048
     Dates: start: 20090922
  12. ACETAMINOPHEN [Concomitant]
     Route: 048
     Dates: start: 20090922
  13. METHYLPREDNISOLONE [Concomitant]
     Route: 042
     Dates: start: 20090922

REACTIONS (2)
  - Dermal cyst [Recovered/Resolved]
  - Ear infection fungal [Not Recovered/Not Resolved]
